FAERS Safety Report 12500340 (Version 9)
Quarter: 2017Q4

REPORT INFORMATION
  Report Type: Spontaneous
  Country: US (occurrence: US)
  Receive Date: 20160627
  Receipt Date: 20171121
  Transmission Date: 20180320
  Serious: Yes (Hospitalization, Other)
  Sender: FDA-Public Use
  Company Number: US-PFIZER INC-2016287468

PATIENT
  Age: 78 Year
  Sex: Female
  Weight: 62 kg

DRUGS (9)
  1. LETROZOLE. [Concomitant]
     Active Substance: LETROZOLE
     Dosage: 2 DF, UNK
  2. IBRANCE [Suspect]
     Active Substance: PALBOCICLIB
     Indication: BREAST CANCER METASTATIC
     Dosage: 125 MG, CYCLIC (DAY 1-21 / EVERY 28 DAY)
     Route: 048
     Dates: start: 20160406
  3. IBRANCE [Suspect]
     Active Substance: PALBOCICLIB
     Dosage: 100 MG, CYCLIC (D1-21 Q28 DAYS)
     Route: 048
     Dates: start: 20160406
  4. IBRANCE [Suspect]
     Active Substance: PALBOCICLIB
     Dosage: 125 MG, CYCLIC (DAY 1-21 / EVERY 28 DAY)
     Route: 048
  5. IBRANCE [Suspect]
     Active Substance: PALBOCICLIB
     Dosage: 100 MG, CYCLIC (D1-21 Q28 DAYS)
     Route: 048
     Dates: start: 20160406
  6. IBRANCE [Suspect]
     Active Substance: PALBOCICLIB
     Dosage: 2 DF, UNK (2 DOSES OF IBRANCE)
     Route: 048
  7. IBRANCE [Suspect]
     Active Substance: PALBOCICLIB
     Dosage: 125 MG, CYCLIC (DAY 1-21 / EVERY 28 DAY)
     Route: 048
  8. IBRANCE [Suspect]
     Active Substance: PALBOCICLIB
     Dosage: 125 MG, CYCLIC (DAY 1-21 / EVERY 28 DAY)
     Route: 048
  9. IBRANCE [Suspect]
     Active Substance: PALBOCICLIB
     Dosage: 125 MG, CYCLIC (D1-21 Q28DAYS)
     Route: 048

REACTIONS (17)
  - Abdominal distension [Recovered/Resolved]
  - Peripheral swelling [Unknown]
  - Atrial fibrillation [Recovering/Resolving]
  - Nausea [Unknown]
  - Fatigue [Not Recovered/Not Resolved]
  - Malaise [Unknown]
  - Pulmonary embolism [Recovering/Resolving]
  - Tooth abscess [Unknown]
  - Depression [Unknown]
  - Drug dose omission [Unknown]
  - Insomnia [Unknown]
  - Asthenia [Not Recovered/Not Resolved]
  - Decreased appetite [Unknown]
  - Crying [Unknown]
  - Memory impairment [Unknown]
  - Diarrhoea [Unknown]
  - Incorrect dose administered [Unknown]

NARRATIVE: CASE EVENT DATE: 20160805
